FAERS Safety Report 8345470-1 (Version None)
Quarter: 2012Q2

REPORT INFORMATION
  Report Type: 
  Country: None (occurrence: None)
  Receive Date: 20120508
  Receipt Date: 20120502
  Transmission Date: 20120825
  Serious: Yes (Hospitalization)
  Sender: FDA-Public Use
  Company Number: US-MYLANLABS-2012S1007634

PATIENT
  Age: 72 Year
  Sex: Female

DRUGS (4)
  1. LOSARTAN POTASSIUM [Concomitant]
     Indication: BLOOD PRESSURE INCREASED
     Dates: start: 20120228
  2. CLARITHROMYCIN [Suspect]
     Indication: PNEUMONIA
     Route: 048
     Dates: start: 20120330, end: 20120410
  3. CLONIDINE HYDROCHLORIDE [Suspect]
     Indication: BLOOD PRESSURE INCREASED
     Route: 048
     Dates: start: 20120316, end: 20120417
  4. CLONIDINE HYDROCHLORIDE [Suspect]
     Route: 048
     Dates: start: 20120417, end: 20120428

REACTIONS (14)
  - PARAESTHESIA [None]
  - DRY MOUTH [None]
  - ABNORMAL DREAMS [None]
  - FATIGUE [None]
  - PALPITATIONS [None]
  - DRUG WITHDRAWAL SYNDROME [None]
  - PANIC ATTACK [None]
  - CONSTIPATION [None]
  - CHEST PAIN [None]
  - FLUSHING [None]
  - NAUSEA [None]
  - HEADACHE [None]
  - MUSCULAR WEAKNESS [None]
  - BLOOD PRESSURE INCREASED [None]
